FAERS Safety Report 18968979 (Version 1)
Quarter: 2021Q1

REPORT INFORMATION
  Report Type: Spontaneous
  Country: US (occurrence: US)
  Receive Date: 20210304
  Receipt Date: 20210304
  Transmission Date: 20210420
  Serious: No
  Sender: FDA-Public Use
  Company Number: US-VYERA PHARMACEUTICALS, LLC-2020VYE00043

PATIENT
  Sex: Female

DRUGS (8)
  1. ATOVAQUONE. [Concomitant]
     Active Substance: ATOVAQUONE
     Dosage: UNK
     Dates: end: 2020
  2. LOVASTATIN. [Concomitant]
     Active Substance: LOVASTATIN
  3. DARAPRIM [Suspect]
     Active Substance: PYRIMETHAMINE
     Dosage: 50 MG, 1X/DAY
     Route: 048
     Dates: start: 202010
  4. PREDNISONE. [Suspect]
     Active Substance: PREDNISONE
     Dosage: ^TAPERING OFF^
     Dates: end: 2020
  5. DARAPRIM [Suspect]
     Active Substance: PYRIMETHAMINE
     Indication: EYE INFECTION TOXOPLASMAL
     Dosage: 100 MG, ONCE
     Route: 048
     Dates: start: 202010, end: 202010
  6. LEUCOVORIN. [Concomitant]
     Active Substance: LEUCOVORIN
  7. AZITHROMYCIN ANHYDROUS. [Concomitant]
     Active Substance: AZITHROMYCIN ANHYDROUS
     Dosage: UNK
     Dates: start: 2020
  8. LEVOTHYROXINE. [Concomitant]
     Active Substance: LEVOTHYROXINE

REACTIONS (3)
  - Nausea [Not Recovered/Not Resolved]
  - Tremor [Not Recovered/Not Resolved]
  - Off label use [Not Recovered/Not Resolved]

NARRATIVE: CASE EVENT DATE: 2020
